FAERS Safety Report 26188611 (Version 1)
Quarter: 2025Q4

REPORT INFORMATION
  Report Type: Spontaneous
  Country: JP (occurrence: JP)
  Receive Date: 20251222
  Receipt Date: 20251222
  Transmission Date: 20260119
  Serious: Yes (Hospitalization, Other)
  Sender: GLAXOSMITHKLINE
  Company Number: JP-GSK-JP2025150674

PATIENT
  Sex: Female

DRUGS (2)
  1. TRELEGY ELLIPTA [Suspect]
     Active Substance: FLUTICASONE FUROATE\UMECLIDINIUM BROMIDE\VILANTEROL TRIFENATATE
     Indication: Asthma
     Dosage: UNK
  2. GEFAPIXANT CITRATE [Suspect]
     Active Substance: GEFAPIXANT CITRATE
     Indication: Cough
     Dosage: UNK

REACTIONS (5)
  - Cough [Unknown]
  - Asthma [Recovering/Resolving]
  - Infective exacerbation of asthma [Recovering/Resolving]
  - Taste disorder [Recovering/Resolving]
  - Drug ineffective [Unknown]
